FAERS Safety Report 9527767 (Version 1)
Quarter: 2013Q3

REPORT INFORMATION
  Report Type: Spontaneous
  Country: US (occurrence: US)
  Receive Date: 20130917
  Receipt Date: 20130917
  Transmission Date: 20140515
  Serious: Yes (Hospitalization)
  Sender: FDA-Public Use
  Company Number: US-TEVA-432057USA

PATIENT
  Age: 54 Year
  Sex: Male

DRUGS (2)
  1. PROAIR HFA [Suspect]
     Indication: DYSPNOEA
     Route: 055
  2. ALBUTEROL [Concomitant]
     Indication: DYSPNOEA

REACTIONS (1)
  - Blood pressure increased [Recovered/Resolved]
